FAERS Safety Report 23459431 (Version 1)
Quarter: 2024Q1

REPORT INFORMATION
  Report Type: Spontaneous
  Country: GB (occurrence: GB)
  Receive Date: 20240131
  Receipt Date: 20240131
  Transmission Date: 20240410
  Serious: Yes (Other)
  Sender: FDA-Public Use
  Company Number: None

PATIENT
  Sex: Female

DRUGS (1)
  1. PROTOPIC [Suspect]
     Active Substance: TACROLIMUS
     Indication: Product used for unknown indication
     Dosage: ONCE A DAY; ;

REACTIONS (1)
  - Neoplasm malignant [Not Recovered/Not Resolved]
